FAERS Safety Report 7332835-X (Version None)
Quarter: 2011Q1

REPORT INFORMATION
  Report Type: 
  Country: None (occurrence: None)
  Receive Date: 20110304
  Receipt Date: 20110221
  Transmission Date: 20110831
  Serious: Yes (Hospitalization)
  Sender: FDA-Public Use
  Company Number: US-MERCK-1102USA02580

PATIENT
  Age: 69 Year
  Sex: Female

DRUGS (2)
  1. ASPIRIN [Concomitant]
     Route: 065
  2. FOSAMAX [Suspect]
     Indication: OSTEOPOROSIS
     Route: 048
     Dates: start: 20050101

REACTIONS (7)
  - VENTRICULAR EXTRASYSTOLES [None]
  - CHILLS [None]
  - MALAISE [None]
  - PYREXIA [None]
  - MITRAL VALVE PROLAPSE [None]
  - CHEST DISCOMFORT [None]
  - HEART RATE DECREASED [None]
